FAERS Safety Report 5396049-5 (Version None)
Quarter: 2007Q3

REPORT INFORMATION
  Report Type: 
  Country: None (occurrence: None)
  Receive Date: 20070724
  Receipt Date: 20070712
  Transmission Date: 20080115
  Serious: Yes (Other)
  Sender: FDA-Public Use
  Company Number: US-PFIZER INC-2007059365

PATIENT
  Sex: Female
  Weight: 80.909 kg

DRUGS (8)
  1. CHANTIX [Suspect]
     Indication: SMOKING CESSATION THERAPY
     Dosage: TEXT:EVERY DAY
  2. ASTELIN [Concomitant]
     Indication: HYPERSENSITIVITY
  3. ZYRTEC [Concomitant]
     Indication: HYPERSENSITIVITY
  4. FLONASE [Concomitant]
     Indication: HYPERSENSITIVITY
  5. SPIRIVA [Concomitant]
  6. ALBUTEROL [Concomitant]
     Indication: RESPIRATORY DISORDER
  7. PROTONIX [Concomitant]
     Indication: GASTROOESOPHAGEAL REFLUX DISEASE
  8. PROTONIX [Concomitant]
     Indication: OESOPHAGEAL STENOSIS

REACTIONS (6)
  - ACTIVITIES OF DAILY LIVING IMPAIRED [None]
  - FEELINGS OF WORTHLESSNESS [None]
  - MALAISE [None]
  - NAUSEA [None]
  - SOMNOLENCE [None]
  - VOMITING [None]
